FAERS Safety Report 6617332-9 (Version None)
Quarter: 2010Q1

REPORT INFORMATION
  Report Type: 
  Country: None (occurrence: None)
  Receive Date: 20100307
  Receipt Date: 20091021
  Transmission Date: 20100710
  Serious: No
  Sender: FDA-Public Use
  Company Number: US-BAYER-200931732NA

PATIENT
  Sex: Female

DRUGS (7)
  1. YAZ [Suspect]
     Indication: DRUG USE FOR UNKNOWN INDICATION
     Route: 048
     Dates: start: 20090601
  2. PROZAC [Concomitant]
  3. CARBATROL [Concomitant]
  4. PROVIGIL [Concomitant]
  5. LEVOXYL [Concomitant]
  6. MAXALT [Concomitant]
  7. BETASERON [Concomitant]
     Dates: start: 20090801

REACTIONS (1)
  - VAGINAL HAEMORRHAGE [None]
